FAERS Safety Report 15316805 (Version 2)
Quarter: 2019Q2

REPORT INFORMATION
  Report Type: Spontaneous
  Country: US (occurrence: US)
  Receive Date: 20180824
  Receipt Date: 20190507
  Transmission Date: 20190711
  Serious: Yes (Other)
  Sender: FDA-Public Use
  Company Number: US-ASTRAZENECA-2018SF05226

PATIENT
  Age: 39 Year
  Sex: Male
  Weight: 117.9 kg

DRUGS (20)
  1. PROTONIX [Suspect]
     Active Substance: PANTOPRAZOLE SODIUM
     Indication: GASTROOESOPHAGEAL REFLUX DISEASE
     Dosage: PANTOPRAZOLE
     Route: 065
     Dates: start: 2014, end: 2016
  2. DIOVAN [Concomitant]
     Active Substance: VALSARTAN
  3. FLUTICASONE. [Concomitant]
     Active Substance: FLUTICASONE
  4. PRAMIPEXOLE. [Concomitant]
     Active Substance: PRAMIPEXOLE
  5. CATAPRES [Concomitant]
     Active Substance: CLONIDINE HYDROCHLORIDE
  6. DIAZEPAM. [Concomitant]
     Active Substance: DIAZEPAM
  7. AMLODIPINE [Concomitant]
     Active Substance: AMLODIPINE BESYLATE
  8. ASPIRIN. [Concomitant]
     Active Substance: ASPIRIN
  9. ZOFRAN [Concomitant]
     Active Substance: ONDANSETRON HYDROCHLORIDE
  10. LEVAQUIN [Concomitant]
     Active Substance: LEVOFLOXACIN
  11. TRILEPTAL [Concomitant]
     Active Substance: OXCARBAZEPINE
  12. AVAPRO [Concomitant]
     Active Substance: IRBESARTAN
  13. NOVOLOG [Concomitant]
     Active Substance: INSULIN ASPART
  14. REGLAN [Concomitant]
     Active Substance: METOCLOPRAMIDE HYDROCHLORIDE
  15. NEXIUM [Suspect]
     Active Substance: ESOMEPRAZOLE MAGNESIUM
     Indication: GASTROOESOPHAGEAL REFLUX DISEASE
     Route: 048
     Dates: start: 2006, end: 2015
  16. LANTUS [Concomitant]
     Active Substance: INSULIN GLARGINE
  17. CLONIDINE. [Concomitant]
     Active Substance: CLONIDINE
  18. SUCRALFATE. [Concomitant]
     Active Substance: SUCRALFATE
  19. LYRICA [Concomitant]
     Active Substance: PREGABALIN
  20. LONITEN [Concomitant]
     Active Substance: MINOXIDIL

REACTIONS (5)
  - Tubulointerstitial nephritis [Unknown]
  - End stage renal disease [Unknown]
  - Renal failure [Unknown]
  - Acute kidney injury [Not Recovered/Not Resolved]
  - Chronic kidney disease [Not Recovered/Not Resolved]

NARRATIVE: CASE EVENT DATE: 2011
